FAERS Safety Report 7587921-6 (Version None)
Quarter: 2011Q3

REPORT INFORMATION
  Report Type: 
  Country: None (occurrence: None)
  Receive Date: 20110705
  Receipt Date: 20110621
  Transmission Date: 20111222
  Serious: Yes (Death, Hospitalization, Other)
  Sender: FDA-Public Use
  Company Number: CA-AMGEN-CANSP2011032328

PATIENT
  Age: 53 Year
  Sex: Male

DRUGS (4)
  1. PLAQUENIL [Concomitant]
     Dosage: UNK
     Route: 065
     Dates: start: 20011101
  2. ENBREL [Suspect]
     Indication: RHEUMATOID ARTHRITIS
     Dosage: 50MG, WEEKLY
     Route: 058
     Dates: start: 20030106, end: 20091101
  3. METHOTREXATE SODIUM [Suspect]
     Dosage: 25.0 MG, WEEKLY
     Route: 065
     Dates: start: 20021101, end: 20091101
  4. FOLIC ACID [Concomitant]
     Dosage: UNK
     Route: 065
     Dates: start: 20011101

REACTIONS (11)
  - HAEMORRHOIDS [None]
  - HELICOBACTER GASTRITIS [None]
  - MULTI-ORGAN FAILURE [None]
  - H1N1 INFLUENZA [None]
  - DISSEMINATED INTRAVASCULAR COAGULATION [None]
  - PANCYTOPENIA [None]
  - MYOSITIS [None]
  - BENIGN NEOPLASM OF THYROID GLAND [None]
  - HERPES SIMPLEX VISCERAL [None]
  - PULSELESS ELECTRICAL ACTIVITY [None]
  - INTERSTITIAL LUNG DISEASE [None]
